FAERS Safety Report 5955805-2 (Version None)
Quarter: 2008Q4

REPORT INFORMATION
  Report Type: 
  Country: None (occurrence: None)
  Receive Date: 20081117
  Receipt Date: 20081111
  Transmission Date: 20090506
  Serious: Yes (Other)
  Sender: FDA-Public Use
  Company Number: US-PFIZER INC-2008083691

PATIENT
  Sex: Female
  Weight: 67.1 kg

DRUGS (4)
  1. NORVASC [Suspect]
     Indication: HYPERTENSION
     Route: 048
     Dates: start: 20050622, end: 20081003
  2. SYNTHROID [Concomitant]
  3. PROPRANOLOL [Concomitant]
  4. LIPITOR [Concomitant]

REACTIONS (2)
  - GINGIVAL HYPERPLASIA [None]
  - TOOTH DISORDER [None]
